FAERS Safety Report 5062313-2 (Version None)
Quarter: 2006Q3

REPORT INFORMATION
  Report Type: 
  Country: None (occurrence: None)
  Receive Date: 20060721
  Receipt Date: 20060704
  Transmission Date: 20061208
  Serious: Yes (Hospitalization)
  Sender: FDA-Public Use
  Company Number: FR200607000296

PATIENT
  Age: 84 Year
  Sex: Female

DRUGS (2)
  1. FORTEO [Suspect]
     Indication: OSTEOPOROSIS
     Dosage: 20 UG, DAILY (1/D), SUBCUTANEOUS
     Route: 058
     Dates: start: 20060508
  2. FORTEO PEN (25MCG/ML) (FORTEO PEN 250MCG/ML 3ML)) PEN, DISPOSABLE [Concomitant]

REACTIONS (2)
  - CEREBRAL ARTERY EMBOLISM [None]
  - TACHYCARDIA [None]
